FAERS Safety Report 24712591 (Version 1)
Quarter: 2024Q4

REPORT INFORMATION
  Report Type: Spontaneous
  Country: JP (occurrence: JP)
  Receive Date: 20241209
  Receipt Date: 20241209
  Transmission Date: 20250115
  Serious: Yes (Death, Other)
  Sender: ALEXION PHARMACEUTICALS
  Company Number: JP-ASTRAZENECA-240138142_013120_P_1

PATIENT
  Age: 8 Decade

DRUGS (2)
  1. DURVALUMAB [Suspect]
     Active Substance: DURVALUMAB
     Indication: Hepatocellular carcinoma
  2. TREMELIMUMAB [Suspect]
     Active Substance: TREMELIMUMAB
     Indication: Hepatocellular carcinoma

REACTIONS (4)
  - Asphyxia [Fatal]
  - Pneumonia aspiration [Unknown]
  - Altered state of consciousness [Unknown]
  - Hyponatraemia [Unknown]
